FAERS Safety Report 25773653 (Version 1)
Quarter: 2025Q3

REPORT INFORMATION
  Report Type: Spontaneous
  Country: US (occurrence: US)
  Receive Date: 20250908
  Receipt Date: 20250908
  Transmission Date: 20251020
  Serious: Yes (Other)
  Sender: ABBVIE
  Company Number: US-ABBVIE-6444686

PATIENT
  Sex: Male

DRUGS (2)
  1. CYCLOSPORINE [Suspect]
     Active Substance: CYCLOSPORINE
     Indication: Dry eye
     Dosage: CYCLOSPORINE 0.05%; NDC: 60505-6202-2
     Route: 047
     Dates: start: 202412, end: 202503
  2. CYCLOSPORINE [Suspect]
     Active Substance: CYCLOSPORINE
     Dosage: CYCLOSPORINE 0.05%; OCCASIONALLY
     Route: 047
     Dates: end: 202503

REACTIONS (3)
  - Cataract [Unknown]
  - Eye pain [Unknown]
  - Therapeutic product effect incomplete [Unknown]
